FAERS Safety Report 13466704 (Version 1)
Quarter: 2017Q2

REPORT INFORMATION
  Report Type: Spontaneous
  Country: US (occurrence: US)
  Receive Date: 20170420
  Receipt Date: 20170420
  Transmission Date: 20170830
  Serious: Yes (Death)
  Sender: FDA-Public Use
  Company Number: None

PATIENT
  Age: 60 Year
  Sex: Female
  Weight: 47.17 kg

DRUGS (25)
  1. LOPRESSOR [Concomitant]
     Active Substance: METOPROLOL TARTRATE
  2. ATIVAN [Concomitant]
     Active Substance: LORAZEPAM
  3. SODIUM BICARBONATE. [Concomitant]
     Active Substance: SODIUM BICARBONATE
  4. ROBITUSSIN (GUAIFENESIN) [Concomitant]
     Active Substance: GUAIFENESIN
  5. COLACE [Concomitant]
     Active Substance: DOCUSATE SODIUM
  6. LASIX [Concomitant]
     Active Substance: FUROSEMIDE
  7. KAYEXALATE [Concomitant]
     Active Substance: SODIUM POLYSTYRENE SULFONATE
  8. DIOVAN [Concomitant]
     Active Substance: VALSARTAN
  9. SENOKOT [Concomitant]
     Active Substance: SENNOSIDES
  10. AIRBORNE [Concomitant]
     Active Substance: HERBALS\MINERALS\VITAMINS
  11. ZOFRAN [Concomitant]
     Active Substance: ONDANSETRON HYDROCHLORIDE
  12. MARIONOL [Concomitant]
  13. ATROVENT [Concomitant]
     Active Substance: IPRATROPIUM BROMIDE
  14. MIRALAX [Concomitant]
     Active Substance: POLYETHYLENE GLYCOL 3350
  15. SODIUM CHLORIDE. [Concomitant]
     Active Substance: SODIUM CHLORIDE
  16. PROTONIX [Concomitant]
     Active Substance: PANTOPRAZOLE SODIUM
  17. ANCEF [Concomitant]
     Active Substance: CEFAZOLIN SODIUM
  18. DULCOLAX NOS [Concomitant]
     Active Substance: BISACODYL OR DOCUSATE SODIUM
  19. MUCOMYST [Concomitant]
     Active Substance: ACETYLCYSTEINE
  20. ALBUTEROL. [Concomitant]
     Active Substance: ALBUTEROL
  21. LOVENOX [Concomitant]
     Active Substance: ENOXAPARIN SODIUM
  22. CARBOPLATIN. [Suspect]
     Active Substance: CARBOPLATIN
  23. PERCOCET [Concomitant]
     Active Substance: ACETAMINOPHEN\OXYCODONE HYDROCHLORIDE
  24. TYLENOL [Concomitant]
     Active Substance: ACETAMINOPHEN
  25. MORPHINE [Concomitant]
     Active Substance: MORPHINE

REACTIONS (9)
  - Asthenia [None]
  - Failure to thrive [None]
  - Pleural effusion [None]
  - Cardiac tamponade [None]
  - Dyspnoea at rest [None]
  - Therapy cessation [None]
  - Dyspnoea exertional [None]
  - Productive cough [None]
  - Pericardial effusion [None]

NARRATIVE: CASE EVENT DATE: 20170207
